FAERS Safety Report 9693953 (Version 4)
Quarter: 2013Q4

REPORT INFORMATION
  Report Type: Spontaneous
  Country: IT (occurrence: IT)
  Receive Date: 20131118
  Receipt Date: 20131211
  Transmission Date: 20140711
  Serious: Yes (Hospitalization)
  Sender: FDA-Public Use
  Company Number: IT-PFIZER INC-2013324574

PATIENT
  Age: 41 Year
  Sex: Male

DRUGS (4)
  1. RAMIPRIL [Suspect]
     Indication: HYPERTENSION
     Dosage: 5 MG, DAILY
     Route: 048
     Dates: start: 20131025, end: 20131027
  2. ENTUMIN [Concomitant]
     Dosage: 100 MG/ML
     Route: 048
  3. TAVOR [Concomitant]
     Dosage: 2.5 MG, UNK
     Route: 048
  4. METHADONE HYDROCHLORIDE [Concomitant]
     Dosage: UNK
     Route: 065

REACTIONS (2)
  - Bronchospasm [Recovered/Resolved]
  - Dyspnoea [Recovered/Resolved]
